FAERS Safety Report 4767695-4 (Version None)
Quarter: 2005Q3

REPORT INFORMATION
  Report Type: 
  Country: None (occurrence: None)
  Receive Date: 20050912
  Receipt Date: 20050831
  Transmission Date: 20060218
  Serious: Yes (Life-Threatening, Hospitalization, Other)
  Sender: FDA-Public Use
  Company Number: DE-2005-010131

PATIENT
  Age: 67 Year
  Sex: Male
  Weight: 70 kg

DRUGS (11)
  1. MAGNEVIST [Suspect]
     Indication: VENOGRAM
     Dosage: 30 ML, 1 ML, 1 DOSE, INTRAVENOUS
     Route: 042
     Dates: start: 20041119, end: 20041119
  2. ERYTHROPOIETIN HUMAN (ERYTHROPOIETIN HUMAN) [Concomitant]
  3. CALCIUM ACETATE (CALCIUM ACETATE) [Concomitant]
  4. FOSINOPRIL SODIUM [Concomitant]
  5. FALITHROM (PHENPROCOUMON) [Concomitant]
  6. OMEPRAZOLE [Concomitant]
  7. METOPROLOL SUCCINATE [Concomitant]
  8. SODIUM BICARBONATE IN PLASTIC CONTAINER [Concomitant]
  9. CARENAL [Concomitant]
  10. ELUTIT-CALCIUM (CALCIUM POLYSTYRENE SULFOANTE) [Concomitant]
  11. SELENIDE SODIUM (SELENIDE SODIUM) [Concomitant]

REACTIONS (18)
  - C-REACTIVE PROTEIN INCREASED [None]
  - CARDIOMEGALY [None]
  - CHEST PAIN [None]
  - CHILLS [None]
  - DILATATION ATRIAL [None]
  - DYSPNOEA [None]
  - FIBRIN D DIMER INCREASED [None]
  - LUNG INFILTRATION [None]
  - PERICARDIAL EFFUSION [None]
  - PNEUMONIA [None]
  - POST PROCEDURAL COMPLICATION [None]
  - PULMONARY CONGESTION [None]
  - PULMONARY EMBOLISM [None]
  - PULMONARY HYPERTENSION [None]
  - PULMONARY INFARCTION [None]
  - PYREXIA [None]
  - SUPRAVENTRICULAR TACHYCARDIA [None]
  - TROPONIN INCREASED [None]
